FAERS Safety Report 17718055 (Version 1)
Quarter: 2020Q2

REPORT INFORMATION
  Report Type: Spontaneous
  Country: US (occurrence: US)
  Receive Date: 20200427
  Receipt Date: 20200427
  Transmission Date: 20200714
  Serious: Yes (Death)
  Sender: FDA-Public Use
  Company Number: None

PATIENT
  Age: 67 Year
  Sex: Female

DRUGS (1)
  1. POMALYST [Suspect]
     Active Substance: POMALIDOMIDE
     Indication: PLASMA CELL MYELOMA
     Route: 048
     Dates: start: 20190221, end: 20190429

REACTIONS (5)
  - General physical health deterioration [None]
  - Hypercalcaemia [None]
  - Shock [None]
  - Confusional state [None]
  - Disease progression [None]

NARRATIVE: CASE EVENT DATE: 20190429
